FAERS Safety Report 19297595 (Version 2)
Quarter: 2021Q2

REPORT INFORMATION
  Report Type: Spontaneous
  Country: PT (occurrence: PT)
  Receive Date: 20210524
  Receipt Date: 20210531
  Transmission Date: 20210717
  Serious: Yes (Other)
  Sender: FDA-Public Use
  Company Number: NVSC2021PT108460

PATIENT
  Age: 72 Year
  Sex: Female
  Weight: 67 kg

DRUGS (15)
  1. EZETIMIBE. [Concomitant]
     Active Substance: EZETIMIBE
     Indication: PRODUCT USED FOR UNKNOWN INDICATION
     Dosage: 10 MG, QD
     Route: 048
  2. RIBOCICLIB. [Suspect]
     Active Substance: RIBOCICLIB
     Dosage: 400 MG (ID FOR 21 DAYS 28?DAY CYCLES)
     Route: 048
     Dates: start: 20200730, end: 20200831
  3. VITAMIN D3 [Concomitant]
     Active Substance: CHOLECALCIFEROL
     Indication: PRODUCT USED FOR UNKNOWN INDICATION
     Dosage: 880 IU, QD
     Route: 048
  4. CALCIUM CARBONATE. [Concomitant]
     Active Substance: CALCIUM CARBONATE
     Indication: PRODUCT USED FOR UNKNOWN INDICATION
     Dosage: 2500 MG
     Route: 065
  5. LERCANIDIPINE [Concomitant]
     Active Substance: LERCANIDIPINE
     Indication: PRODUCT USED FOR UNKNOWN INDICATION
     Dosage: 20 MG, QD
     Route: 048
  6. ATORVASTATIN [Concomitant]
     Active Substance: ATORVASTATIN
     Indication: PRODUCT USED FOR UNKNOWN INDICATION
     Dosage: 20 MG, QD
     Route: 048
  7. ZILPEN [Concomitant]
     Active Substance: ACETAMINOPHEN\TRAMADOL HYDROCHLORIDE
     Indication: PRODUCT USED FOR UNKNOWN INDICATION
     Dosage: UNK 12/H
     Route: 048
  8. RIBOCICLIB. [Suspect]
     Active Substance: RIBOCICLIB
     Indication: BREAST CANCER
     Dosage: 600 MG (ID FOR 21 DAYS 28?DAY CYCLES)
     Route: 048
     Dates: start: 20200507, end: 20200709
  9. TRIFLUSAL [Concomitant]
     Active Substance: TRIFLUSAL
     Indication: PRODUCT USED FOR UNKNOWN INDICATION
     Dosage: 30 MG, BID
     Route: 048
  10. ALLOPURINOL. [Concomitant]
     Active Substance: ALLOPURINOL
     Indication: PRODUCT USED FOR UNKNOWN INDICATION
     Dosage: 150 MG, QD
     Route: 048
  11. LETROZOLE. [Concomitant]
     Active Substance: LETROZOLE
     Indication: PRODUCT USED FOR UNKNOWN INDICATION
     Dosage: 2.5 MG, QD
     Route: 048
     Dates: start: 20200228
  12. RIBOCICLIB. [Suspect]
     Active Substance: RIBOCICLIB
     Dosage: 200 MG
     Route: 048
  13. VALSARTAN. [Concomitant]
     Active Substance: VALSARTAN
     Indication: PRODUCT USED FOR UNKNOWN INDICATION
     Dosage: 160 MG, QD
     Route: 048
  14. INSULIN [Concomitant]
     Active Substance: INSULIN NOS
     Indication: PRODUCT USED FOR UNKNOWN INDICATION
     Dosage: SOS
     Route: 065
  15. ACTRAPID [Concomitant]
     Active Substance: INSULIN HUMAN
     Indication: PRODUCT USED FOR UNKNOWN INDICATION
     Dosage: SOS
     Route: 065

REACTIONS (13)
  - Blood creatinine increased [Unknown]
  - Hepatotoxicity [Unknown]
  - Blood potassium increased [Unknown]
  - Renal impairment [Unknown]
  - Asthenia [Unknown]
  - Neutropenia [Unknown]
  - Nausea [Recovered/Resolved]
  - Metastases to liver [Unknown]
  - Thrombocytopenia [Unknown]
  - Drug intolerance [Unknown]
  - Metastases to bone [Unknown]
  - Transaminases increased [Unknown]
  - Pain [Unknown]

NARRATIVE: CASE EVENT DATE: 20210506
